FAERS Safety Report 21783862 (Version 19)
Quarter: 2025Q4

REPORT INFORMATION
  Report Type: Report from Study
  Country: US (occurrence: US)
  Receive Date: 20221227
  Receipt Date: 20251216
  Transmission Date: 20260117
  Serious: Yes (Other)
  Sender: PFIZER
  Company Number: US-PFIZER INC-PV202200130170

PATIENT
  Age: 70 Year
  Sex: Female
  Weight: 50.794 kg

DRUGS (4)
  1. PREMARIN [Suspect]
     Active Substance: ESTROGENS, CONJUGATED
     Indication: Vulvovaginal dryness
     Dosage: TAKE 1 TABLET(S) EVERY DAY/TAKE 1 TABLET(S) EVERY DAY BY ORAL ROUTE FOR 90 DAYS
     Route: 048
     Dates: start: 20230111
  2. PREMARIN [Suspect]
     Active Substance: ESTROGENS, CONJUGATED
     Indication: Vaginal dysplasia
  3. PREMARIN [Suspect]
     Active Substance: ESTROGENS, CONJUGATED
     Indication: Menopause
  4. PREMARIN [Suspect]
     Active Substance: ESTROGENS, CONJUGATED
     Indication: Menopausal symptoms

REACTIONS (9)
  - Cataract [Unknown]
  - Generalised anxiety disorder [Unknown]
  - Disease recurrence [Unknown]
  - Stress [Unknown]
  - Visual field defect [Unknown]
  - Concussion [Recovering/Resolving]
  - Neck injury [Unknown]
  - Muscle disorder [Recovering/Resolving]
  - Dyslexia [Unknown]
